FAERS Safety Report 24258239 (Version 3)
Quarter: 2024Q3

REPORT INFORMATION
  Report Type: Report from Study
  Country: ZA (occurrence: ZA)
  Receive Date: 20240828
  Receipt Date: 20240906
  Transmission Date: 20241017
  Serious: Yes (Other)
  Sender: ROCHE
  Company Number: ZA-ROCHE-10000063529

PATIENT
  Sex: Female

DRUGS (1)
  1. VABYSMO [Suspect]
     Active Substance: FARICIMAB\FARICIMAB-SVOA
     Indication: Macular degeneration
     Route: 050

REACTIONS (2)
  - Fall [Unknown]
  - Knee operation [Unknown]
